FAERS Safety Report 25633797 (Version 1)
Quarter: 2025Q3

REPORT INFORMATION
  Report Type: Spontaneous
  Country: GB (occurrence: GB)
  Receive Date: 20250801
  Receipt Date: 20250801
  Transmission Date: 20251021
  Serious: Yes (Disabling, Other)
  Sender: PFIZER
  Company Number: None

PATIENT
  Age: 60 Year
  Sex: Male
  Weight: 117 kg

DRUGS (19)
  1. LINEZOLID [Suspect]
     Active Substance: LINEZOLID
     Dosage: 600 MG, 2X/DAY
     Dates: start: 20250717, end: 20250722
  2. ASPIRIN [Concomitant]
     Active Substance: ASPIRIN
  3. ATORVASTATIN [Concomitant]
     Active Substance: ATORVASTATIN
  4. BISOPROLOL [Concomitant]
     Active Substance: BISOPROLOL
  5. CALCI D [Concomitant]
  6. CANDESARTAN [Concomitant]
     Active Substance: CANDESARTAN
  7. DOCUSATE [Concomitant]
     Active Substance: DOCUSATE
  8. ESOMEPRAZOLE [Concomitant]
     Active Substance: ESOMEPRAZOLE
  9. FAMOTIDINE [Concomitant]
     Active Substance: FAMOTIDINE
  10. FUROSEMIDE [Concomitant]
     Active Substance: FUROSEMIDE
  11. LEVOTHYROXINE [Concomitant]
     Active Substance: LEVOTHYROXINE
  12. NEFOPAM [Concomitant]
     Active Substance: NEFOPAM
  13. ACETAMINOPHEN [Concomitant]
     Active Substance: ACETAMINOPHEN
  14. PROGESTERONE [Concomitant]
     Active Substance: PROGESTERONE
  15. ESTRADIOL [Concomitant]
     Active Substance: ESTRADIOL
  16. PRUCALOPRIDE [Concomitant]
     Active Substance: PRUCALOPRIDE
  17. SENNOSIDES A AND B [Concomitant]
     Active Substance: SENNOSIDES A AND B
  18. HYLO FORTE [Concomitant]
  19. SPIRONOLACTONE [Concomitant]
     Active Substance: SPIRONOLACTONE

REACTIONS (2)
  - Muscle rigidity [Recovered/Resolved]
  - Vision blurred [Not Recovered/Not Resolved]

NARRATIVE: CASE EVENT DATE: 20250721
